FAERS Safety Report 23084593 (Version 2)
Quarter: 2023Q4

REPORT INFORMATION
  Report Type: Report from Study
  Country: ES (occurrence: ES)
  Receive Date: 20231019
  Receipt Date: 20231031
  Transmission Date: 20240110
  Serious: Yes (Death)
  Sender: FDA-Public Use
  Company Number: ES-TEVA-2023-ES-2935971

PATIENT

DRUGS (4)
  1. VALGANCICLOVIR [Suspect]
     Active Substance: VALGANCICLOVIR
     Indication: Cytomegalovirus infection
     Route: 065
  2. LAPINE T-LYMPHOCYTE IMMUNE GLOBULIN [Suspect]
     Active Substance: LAPINE T-LYMPHOCYTE IMMUNE GLOBULIN
     Indication: Lymphodepletion
     Route: 065
  3. HUMAN CYTOMEGALOVIRUS IMMUNE GLOBULIN [Suspect]
     Active Substance: HUMAN CYTOMEGALOVIRUS IMMUNE GLOBULIN
     Indication: Cytomegalovirus infection
     Dosage: 400 U/KG ON (DAYS 1, 4, 8) AND THEN 200 U/KG ON (DAYS 12 AND 16)
     Route: 065
  4. HUMAN CYTOMEGALOVIRUS IMMUNE GLOBULIN [Suspect]
     Active Substance: HUMAN CYTOMEGALOVIRUS IMMUNE GLOBULIN
     Indication: Salvage therapy

REACTIONS (4)
  - Cytomegalovirus infection [Fatal]
  - Pneumonia cytomegaloviral [Fatal]
  - Therapy non-responder [Fatal]
  - Off label use [Unknown]
